FAERS Safety Report 16381558 (Version 2)
Quarter: 2019Q2

REPORT INFORMATION
  Report Type: Spontaneous
  Country: JP (occurrence: JP)
  Receive Date: 20190603
  Receipt Date: 20190614
  Transmission Date: 20190711
  Serious: Yes (Other)
  Sender: FDA-Public Use
  Company Number: JP-CLINIGEN GROUP PLC/ CLINIGEN HEALTHCARE LTD-JP-CLGN-19-00338

PATIENT
  Age: 38 Year
  Sex: Female

DRUGS (3)
  1. VICCLOX [Concomitant]
     Active Substance: ACYCLOVIR SODIUM
     Indication: HERPES VIRUS INFECTION
  2. FOSCAVIR [Suspect]
     Active Substance: FOSCARNET SODIUM
     Indication: HERPES VIRUS INFECTION
     Dates: start: 20181005, end: 20181014
  3. ACICLOVIR [Concomitant]
     Active Substance: ACYCLOVIR
     Indication: MENINGITIS

REACTIONS (5)
  - Abortion missed [Unknown]
  - Disability [Unknown]
  - Exposure during pregnancy [Unknown]
  - Off label use [Unknown]
  - Foetal death [Unknown]
